FAERS Safety Report 21096682 (Version 2)
Quarter: 2024Q2

REPORT INFORMATION
  Report Type: Spontaneous
  Country: US (occurrence: US)
  Receive Date: 20220718
  Receipt Date: 20240412
  Transmission Date: 20240716
  Serious: Yes (Other)
  Sender: FDA-Public Use
  Company Number: US-SA-SAC20220712000390

PATIENT

DRUGS (2)
  1. LARONIDASE [Suspect]
     Active Substance: LARONIDASE
     Indication: Mucopolysaccharidosis I
     Dosage: 26.1 (UNIT NOT KNOWN), QW
     Route: 042
     Dates: start: 20200507
  2. LARONIDASE [Suspect]
     Active Substance: LARONIDASE
     Dosage: 40.6 (UNIT NOT KNOWN), QOW
     Route: 042
     Dates: start: 20200220

REACTIONS (8)
  - Corneal opacity [Unknown]
  - Musculoskeletal disorder [Unknown]
  - Haemorrhoids [Not Recovered/Not Resolved]
  - Bowel movement irregularity [Not Recovered/Not Resolved]
  - Anal incontinence [Not Recovered/Not Resolved]
  - Hypoacusis [Unknown]
  - Walking distance test abnormal [Unknown]
  - Inappropriate schedule of product administration [Unknown]

NARRATIVE: CASE EVENT DATE: 20200220
